FAERS Safety Report 11092409 (Version 1)
Quarter: 2015Q2

REPORT INFORMATION
  Report Type: Spontaneous
  Country: US (occurrence: None)
  Receive Date: 20150505
  Receipt Date: 20150505
  Transmission Date: 20150821
  Serious: Yes (Other)
  Sender: FDA-Public Use
  Company Number: None

PATIENT
  Age: 40 Year
  Sex: Female

DRUGS (1)
  1. ENBREL [Suspect]
     Active Substance: ETANERCEPT
     Indication: PSORIATIC ARTHROPATHY
     Route: 058
     Dates: start: 201411, end: 20150413

REACTIONS (4)
  - Feeling hot [None]
  - Tenderness [None]
  - Muscle rigidity [None]
  - Local swelling [None]

NARRATIVE: CASE EVENT DATE: 20150413
